FAERS Safety Report 5803111-9 (Version None)
Quarter: 2008Q2

REPORT INFORMATION
  Report Type: 
  Country: None (occurrence: None)
  Receive Date: 20080626
  Receipt Date: 20080207
  Transmission Date: 20081010
  Serious: Yes (Life-Threatening, Hospitalization)
  Sender: FDA-Public Use
  Company Number: VISP-PR-0802S-0080

PATIENT
  Sex: Male

DRUGS (1)
  1. VISIPAQUE [Suspect]
     Indication: DRUG USE FOR UNKNOWN INDICATION
     Dosage: 100 ML, SINGLE DOSE, I.V.
     Route: 042
     Dates: start: 20070801, end: 20070801

REACTIONS (1)
  - ANAPHYLACTOID SHOCK [None]
